FAERS Safety Report 23902461 (Version 1)
Quarter: 2024Q2

REPORT INFORMATION
  Report Type: Spontaneous
  Country: US (occurrence: None)
  Receive Date: 20240527
  Receipt Date: 20240527
  Transmission Date: 20240716
  Serious: No
  Sender: FDA-Public Use
  Company Number: US-ROCHE-3415243

PATIENT
  Sex: Female

DRUGS (2)
  1. ACTEMRA [Suspect]
     Active Substance: TOCILIZUMAB
     Indication: Systemic scleroderma
     Dosage: ACTPEN (STRENGTH: 162MG/0.9M)
     Route: 058
     Dates: start: 202305
  2. ACTEMRA [Suspect]
     Active Substance: TOCILIZUMAB

REACTIONS (3)
  - Rash [Unknown]
  - Pruritus [Unknown]
  - Brain fog [Unknown]

NARRATIVE: CASE EVENT DATE: 20230802
